FAERS Safety Report 7604091-6 (Version None)
Quarter: 2011Q2

REPORT INFORMATION
  Report Type: 
  Country: None (occurrence: None)
  Receive Date: 20110630
  Receipt Date: 20110616
  Transmission Date: 20111010
  Serious: Yes (Other)
  Sender: FDA-Public Use
  Company Number: 2011AP001236

PATIENT
  Age: 78 Year
  Sex: Female

DRUGS (13)
  1. DONEPEZIL HCL [Suspect]
     Indication: DEMENTIA ALZHEIMER'S TYPE
     Dosage: 5 MG, QD, PO
     Route: 048
  2. ALENDRONATE SODIUM [Concomitant]
  3. CHOLECALCIFEROL (COLECALCIFEROL) [Concomitant]
  4. OMEPRAZOLE [Concomitant]
  5. CALCIUM CARBONATE [Concomitant]
  6. ATENOLOL [Concomitant]
  7. ENOXAPARIN SODIUM [Concomitant]
  8. INDAPAMIDE [Concomitant]
  9. IRBESARTAN (IRBESARTAN) [Concomitant]
  10. LEVOTHYROXINE SODIUM [Concomitant]
  11. SIMVASTATIN [Concomitant]
  12. ASPIRIN [Concomitant]
  13. LEVOTHYROXINE SODIUM [Concomitant]

REACTIONS (2)
  - BUNDLE BRANCH BLOCK LEFT [None]
  - ELECTROCARDIOGRAM QT PROLONGED [None]
